FAERS Safety Report 10228496 (Version 2)
Quarter: 2014Q2

REPORT INFORMATION
  Report Type: Spontaneous
  Country: US (occurrence: US)
  Receive Date: 20140610
  Receipt Date: 20140616
  Transmission Date: 20141212
  Serious: Yes (Other)
  Sender: FDA-Public Use
  Company Number: US-BAYER-2014-081590

PATIENT
  Age: 67 Year
  Sex: Female
  Weight: 68 kg

DRUGS (7)
  1. ALEVE CAPLET [Suspect]
     Indication: ARTHRITIS
     Dosage: 1 DF, PRN
     Route: 048
     Dates: start: 201311, end: 20140528
  2. BAYER ASPIRIN REGIMEN REGULAR 325 MG STRENGTH [Suspect]
     Dosage: UNK
     Dates: end: 1999
  3. BAYER ASPIRIN REGIMEN ADULT LOW STRENGTH [Concomitant]
     Indication: CARDIOVASCULAR EVENT PROPHYLAXIS
     Dosage: 1 DF, QD
     Route: 048
  4. SYNTHROID [Concomitant]
  5. DILANTIN [Concomitant]
  6. CALCIUM [Concomitant]
  7. VITAMIN D3 [Concomitant]

REACTIONS (8)
  - Cystitis [None]
  - Pain [None]
  - Pollakiuria [None]
  - Blood urine present [None]
  - Urinary retention [None]
  - Burning sensation [None]
  - Dyspepsia [Recovered/Resolved]
  - Medication error [None]
